FAERS Safety Report 23632310 (Version 1)
Quarter: 2024Q1

REPORT INFORMATION
  Report Type: Spontaneous
  Country: US (occurrence: US)
  Receive Date: 20240314
  Receipt Date: 20240314
  Transmission Date: 20240410
  Serious: Yes (Death, Hospitalization, Other)
  Sender: FDA-Public Use
  Company Number: US-ANIPHARMA-2024-US-014040

PATIENT
  Age: 57 Year
  Sex: Female

DRUGS (18)
  1. CORTICOTROPIN [Suspect]
     Active Substance: CORTICOTROPIN
     Indication: Systemic lupus erythematosus
     Dosage: 80 UNITS 2X/WEEK
     Route: 058
     Dates: start: 202310, end: 202312
  2. SPIRONOLACTONE [Concomitant]
     Active Substance: SPIRONOLACTONE
  3. PREGABALIN [Concomitant]
     Active Substance: PREGABALIN
  4. PREDNISONE [Concomitant]
     Active Substance: PREDNISONE
  5. LEVETIRACETAM [Concomitant]
     Active Substance: LEVETIRACETAM
  6. CIPROFLOXACIN HYDROCHLORIDE [Concomitant]
     Active Substance: CIPROFLOXACIN HYDROCHLORIDE
  7. OMEPRAZOLE [Concomitant]
     Active Substance: OMEPRAZOLE
  8. IRON [Concomitant]
     Active Substance: IRON
  9. ERGOCALCIFEROL [Concomitant]
     Active Substance: ERGOCALCIFEROL
  10. HYDROXYCHLOROQUINE SULFATE [Concomitant]
     Active Substance: HYDROXYCHLOROQUINE SULFATE
  11. FUROSEMIDE [Concomitant]
     Active Substance: FUROSEMIDE
  12. ZINC GLUCONATE [Concomitant]
     Active Substance: ZINC GLUCONATE
  13. MAGNESIUM [Concomitant]
     Active Substance: MAGNESIUM
  14. CHEWABLE MULTIVITAMINS/FL [Concomitant]
  15. ASPIRIN [Concomitant]
     Active Substance: ASPIRIN
  16. TYLENOL EXTRA STRENGTH [Concomitant]
     Active Substance: ACETAMINOPHEN
  17. DOXYCYCLINE HYCLATE [Concomitant]
     Active Substance: DOXYCYCLINE HYCLATE
  18. CALCIUM\VITAMIN D [Concomitant]
     Active Substance: CALCIUM\VITAMIN D

REACTIONS (15)
  - Pneumonia [Fatal]
  - Septic shock [Fatal]
  - Cardiac failure [Fatal]
  - Transaminases increased [Fatal]
  - Blood lactic acid increased [Fatal]
  - Bacteraemia [Fatal]
  - Immunosuppression [Fatal]
  - Contraindicated product administered [Recovered/Resolved]
  - Influenza [Fatal]
  - Acute respiratory failure [Fatal]
  - Respiratory syncytial virus infection [Fatal]
  - Anaemia [Fatal]
  - Hypervolaemia [Fatal]
  - Metabolic acidosis [Fatal]
  - Obstructive airways disorder [Fatal]
